FAERS Safety Report 13677630 (Version 1)
Quarter: 2017Q2

REPORT INFORMATION
  Report Type: Spontaneous
  Country: US (occurrence: US)
  Receive Date: 20170622
  Receipt Date: 20170622
  Transmission Date: 20170830
  Serious: No
  Sender: FDA-Public Use
  Company Number: US-TRIS PHARMA, INC-2017TRISPO00114

PATIENT

DRUGS (1)
  1. DEXTROMETHORPHAN POLISTIREX [Suspect]
     Active Substance: DEXTROMETHORPHAN HYDROBROMIDE
     Indication: COUGH
     Dosage: 180 MG (30 ML), SINGLE
     Route: 048
     Dates: start: 20170209, end: 20170209

REACTIONS (2)
  - Balance disorder [Unknown]
  - Overdose [Unknown]

NARRATIVE: CASE EVENT DATE: 20170209
